FAERS Safety Report 19067242 (Version 2)
Quarter: 2021Q2

REPORT INFORMATION
  Report Type: Other
  Country: FR (occurrence: FR)
  Receive Date: 20210329
  Receipt Date: 20210419
  Transmission Date: 20210717
  Serious: Yes (Other)
  Sender: FDA-Public Use
  Company Number: FR-ROCHE-2795133

PATIENT
  Age: 3 Year
  Sex: Female
  Weight: 15.6 kg

DRUGS (16)
  1. ALEMTUZUMAB [Suspect]
     Active Substance: ALEMTUZUMAB
     Indication: PROPHYLAXIS AGAINST TRANSPLANT REJECTION
     Route: 065
  2. METHYLPREDNISOLONE. [Concomitant]
     Active Substance: METHYLPREDNISOLONE
     Indication: STILL^S DISEASE
     Route: 065
  3. ORACILLIN [Concomitant]
  4. ADALIMUMAB [Concomitant]
     Active Substance: ADALIMUMAB
  5. CYCLOPHOSPHAMIDE. [Suspect]
     Active Substance: CYCLOPHOSPHAMIDE
     Indication: PROPHYLAXIS AGAINST TRANSPLANT REJECTION
     Route: 065
  6. CYCLOSPORIN [Suspect]
     Active Substance: CYCLOSPORINE
     Indication: PROPHYLAXIS AGAINST TRANSPLANT REJECTION
     Route: 065
  7. BUSULFAN. [Suspect]
     Active Substance: BUSULFAN
     Indication: PROPHYLAXIS AGAINST TRANSPLANT REJECTION
     Dosage: AUC OF 25638 MICROM/MIN.
     Route: 065
  8. HYDROCORTISONE. [Concomitant]
     Active Substance: HYDROCORTISONE
  9. RITUXIMAB. [Suspect]
     Active Substance: RITUXIMAB
     Indication: PROPHYLAXIS AGAINST TRANSPLANT REJECTION
     Route: 041
  10. METHOTREXATE. [Suspect]
     Active Substance: METHOTREXATE
     Indication: PROPHYLAXIS AGAINST TRANSPLANT REJECTION
     Route: 065
  11. CANAKINUMAB. [Concomitant]
     Active Substance: CANAKINUMAB
  12. FLUDARABINE [Suspect]
     Active Substance: FLUDARABINE PHOSPHATE
     Indication: PROPHYLAXIS AGAINST TRANSPLANT REJECTION
     Route: 065
  13. MYCOPHENOLATE MOFETIL. [Suspect]
     Active Substance: MYCOPHENOLATE MOFETIL
     Indication: PROPHYLAXIS AGAINST TRANSPLANT REJECTION
     Route: 065
  14. ANAKINRA [Concomitant]
     Active Substance: ANAKINRA
  15. TOCILIZUMAB. [Concomitant]
     Active Substance: TOCILIZUMAB
     Route: 065
  16. ACYCLOVIR. [Concomitant]
     Active Substance: ACYCLOVIR

REACTIONS (12)
  - Bacterial sepsis [Unknown]
  - Clostridium difficile colitis [Recovered/Resolved]
  - Cellulitis staphylococcal [Unknown]
  - Infection [Unknown]
  - Autoimmune thyroiditis [Unknown]
  - Graft versus host disease in skin [Recovering/Resolving]
  - Herpes zoster [Unknown]
  - Immune thrombocytopenia [Recovered/Resolved]
  - Hyperplasia [Unknown]
  - Hepatic cytolysis [Unknown]
  - Graft versus host disease in gastrointestinal tract [Recovering/Resolving]
  - Varicella zoster virus infection [Unknown]
